FAERS Safety Report 4960007-2 (Version None)
Quarter: 2006Q1

REPORT INFORMATION
  Report Type: 
  Country: None (occurrence: None)
  Receive Date: 20060331
  Receipt Date: 20051013
  Transmission Date: 20060701
  Serious: Yes (Hospitalization, Disabling)
  Sender: FDA-Public Use
  Company Number: US-MERCK-0510USA07028

PATIENT
  Age: 54 Year
  Sex: Female
  Weight: 125 kg

DRUGS (16)
  1. DEMADEX [Concomitant]
     Indication: OEDEMA
     Route: 065
     Dates: start: 19990226, end: 20030826
  2. PREMPRO [Concomitant]
     Indication: HORMONE REPLACEMENT THERAPY
     Route: 065
     Dates: start: 19990824, end: 20020101
  3. SYNTHROID [Concomitant]
     Route: 065
     Dates: start: 19850101, end: 20040124
  4. MERIDIA [Concomitant]
     Indication: WEIGHT
     Route: 065
     Dates: start: 19990325, end: 19990916
  5. REDUX [Concomitant]
     Indication: WEIGHT
     Route: 065
     Dates: start: 19990101, end: 19990101
  6. K-DUR 10 [Concomitant]
     Indication: HYPOKALAEMIA
     Route: 065
     Dates: start: 19990226, end: 19990907
  7. CALAN [Concomitant]
     Indication: HYPERTENSION
     Route: 065
     Dates: start: 19990421, end: 19991103
  8. VIOXX [Suspect]
     Indication: OSTEOARTHRITIS
     Route: 048
     Dates: start: 19990622, end: 20041015
  9. VIOXX [Suspect]
     Route: 048
     Dates: start: 19990622, end: 20041015
  10. VIOXX [Suspect]
     Route: 048
     Dates: start: 19990622, end: 20041015
  11. CELEBREX [Concomitant]
     Indication: ARTHRITIS
     Route: 065
     Dates: start: 19990901, end: 19991015
  12. ULTRAM [Concomitant]
     Indication: PAIN
     Route: 065
     Dates: start: 19990712, end: 20031129
  13. CATAFLAM [Concomitant]
     Indication: PAIN
     Route: 065
     Dates: start: 19990712, end: 19991027
  14. DARVOCET [Concomitant]
     Indication: PAIN
     Route: 065
     Dates: start: 19990421, end: 20050101
  15. DAYPRO [Concomitant]
     Indication: PAIN
     Route: 065
     Dates: start: 19990101
  16. LORTAB [Concomitant]
     Indication: PAIN
     Route: 065
     Dates: start: 19990630

REACTIONS (19)
  - ADVERSE EVENT [None]
  - ANAEMIA POSTOPERATIVE [None]
  - ANXIETY [None]
  - ARTHRITIS [None]
  - CARDIAC DISORDER [None]
  - CARPAL TUNNEL SYNDROME [None]
  - DEEP VEIN THROMBOSIS [None]
  - DRUG HYPERSENSITIVITY [None]
  - HYPERTENSION [None]
  - MONARTHRITIS [None]
  - MUSCLE DISORDER [None]
  - NAUSEA [None]
  - NEURALGIA [None]
  - OEDEMA [None]
  - OSTEOARTHRITIS [None]
  - PAIN [None]
  - PALPITATIONS [None]
  - SWELLING [None]
  - THROMBOPHLEBITIS [None]
